FAERS Safety Report 5912875-5 (Version None)
Quarter: 2008Q4

REPORT INFORMATION
  Report Type: 
  Country: None (occurrence: None)
  Receive Date: 20081008
  Receipt Date: 20080929
  Transmission Date: 20090506
  Serious: Yes (Disabling)
  Sender: FDA-Public Use
  Company Number: GB-MERCK-0711GBR00103

PATIENT
  Age: 50 Year
  Sex: Male
  Weight: 99 kg

DRUGS (4)
  1. ZOCOR [Suspect]
     Indication: BLOOD CHOLESTEROL INCREASED
     Route: 048
     Dates: start: 20070427, end: 20070816
  2. METFORMIN HYDROCHLORIDE AND ROSIGLITAZONE MALEATE [Concomitant]
     Indication: DIABETES MELLITUS
     Route: 048
     Dates: start: 20050621
  3. VASOTEC [Concomitant]
     Indication: HYPERTENSION
     Route: 048
     Dates: start: 19981020
  4. MAGNESIA [MILK OF] [Concomitant]
     Indication: DYSPEPSIA
     Route: 048
     Dates: start: 20020918

REACTIONS (2)
  - ALANINE AMINOTRANSFERASE INCREASED [None]
  - PAIN [None]
